FAERS Safety Report 5399987-2 (Version None)
Quarter: 2007Q3

REPORT INFORMATION
  Report Type: 
  Country: None (occurrence: None)
  Receive Date: 20070727
  Receipt Date: 20070727
  Transmission Date: 20080115
  Serious: Yes (Hospitalization)
  Sender: FDA-Public Use
  Company Number: None

PATIENT
  Age: 49 Year
  Sex: Male

DRUGS (3)
  1. SORIATANE [Suspect]
     Indication: DRUG USE FOR UNKNOWN INDICATION
  2. TIGASON (ETRETINATE) [Suspect]
     Indication: PSORIASIS
     Dosage: ORAL
     Route: 048
  3. VITAMIN D2 (ERGOCALCIFEROL) [Concomitant]

REACTIONS (3)
  - DERMATITIS EXFOLIATIVE [None]
  - DRUG RESISTANCE [None]
  - HYPERCHOLESTEROLAEMIA [None]
